FAERS Safety Report 19154688 (Version 1)
Quarter: 2021Q2

REPORT INFORMATION
  Report Type: Spontaneous
  Country: CN (occurrence: CN)
  Receive Date: 20210419
  Receipt Date: 20210419
  Transmission Date: 20210717
  Serious: Yes (Life-Threatening)
  Sender: FDA-Public Use
  Company Number: CN-PFIZER INC-2021406253

PATIENT
  Age: 33 Year
  Sex: Male
  Weight: 74 kg

DRUGS (1)
  1. AMLODIPINE BESILATE [Suspect]
     Active Substance: AMLODIPINE BESYLATE
     Indication: HYPERTENSION
     Dosage: 96 TABLETS (480 MG), SINGLE DOSE
     Route: 048
     Dates: start: 20210326, end: 20210326

REACTIONS (9)
  - Palpitations [Recovering/Resolving]
  - Acute kidney injury [Recovering/Resolving]
  - Vomiting [Recovering/Resolving]
  - Intentional overdose [Unknown]
  - Hypotension [Recovering/Resolving]
  - Chest discomfort [Recovering/Resolving]
  - Nausea [Recovering/Resolving]
  - Asthenia [Recovering/Resolving]
  - Dizziness [Recovering/Resolving]

NARRATIVE: CASE EVENT DATE: 20210326
